FAERS Safety Report 24052522 (Version 1)
Quarter: 2024Q3

REPORT INFORMATION
  Report Type: Spontaneous
  Country: US (occurrence: US)
  Receive Date: 20240705
  Receipt Date: 20240705
  Transmission Date: 20241017
  Serious: No
  Sender: ROCHE
  Company Number: US-ROCHE-10000015347

PATIENT
  Sex: Female

DRUGS (1)
  1. ACTEMRA [Suspect]
     Active Substance: TOCILIZUMAB
     Indication: Giant cell arteritis
     Route: 058
     Dates: start: 202310

REACTIONS (6)
  - Urticaria [Unknown]
  - Hypersensitivity [Unknown]
  - Dyspnoea [Unknown]
  - Heart rate increased [Unknown]
  - Paraesthesia [Unknown]
  - Myocardial infarction [Unknown]
